FAERS Safety Report 7748771-0 (Version None)
Quarter: 2011Q3

REPORT INFORMATION
  Report Type: 
  Country: None (occurrence: None)
  Receive Date: 20110913
  Receipt Date: 20110913
  Transmission Date: 20111222
  Serious: Yes (Other)
  Sender: FDA-Public Use
  Company Number: None

PATIENT
  Age: 47 Year
  Sex: Female
  Weight: 51.7101 kg

DRUGS (4)
  1. URSODIOL [Suspect]
     Indication: BILIARY CIRRHOSIS PRIMARY
     Dosage: ORAL
     Route: 048
     Dates: start: 20110401
  2. URSODIOL [Suspect]
     Indication: BILIARY CIRRHOSIS PRIMARY
     Dosage: ORAL
     Route: 048
     Dates: start: 20110501
  3. CALCIUM GLUCONATE [Concomitant]
  4. CHANTIX [Concomitant]

REACTIONS (3)
  - ABDOMINAL PAIN [None]
  - FAECES DISCOLOURED [None]
  - DEFORMITY THORAX [None]
